FAERS Safety Report 7753716-3 (Version None)
Quarter: 2011Q3

REPORT INFORMATION
  Report Type: 
  Country: None (occurrence: None)
  Receive Date: 20110915
  Receipt Date: 20110915
  Transmission Date: 20111222
  Serious: No
  Sender: FDA-Public Use
  Company Number: None

PATIENT
  Age: 25 Year
  Sex: Female
  Weight: 89.357 kg

DRUGS (1)
  1. MIRENA [Suspect]
     Indication: CONTRACEPTION
     Dates: start: 20100601, end: 20110110

REACTIONS (3)
  - SKIN ODOUR ABNORMAL [None]
  - METRORRHAGIA [None]
  - DYSMENORRHOEA [None]
